FAERS Safety Report 17083040 (Version 1)
Quarter: 2019Q4

REPORT INFORMATION
  Report Type: Spontaneous
  Country: JP (occurrence: JP)
  Receive Date: 20191127
  Receipt Date: 20191127
  Transmission Date: 20200122
  Serious: Yes (Hospitalization)
  Sender: FDA-Public Use
  Company Number: JP-RECORDATI RARE DISEASES-2077256

PATIENT
  Age: 1 Year
  Sex: Male
  Weight: 10 kg

DRUGS (7)
  1. CYSTADANE [Suspect]
     Active Substance: BETAINE
     Route: 048
     Dates: start: 20161004
  2. LAC-B GRANULAR POWDER (BIFIDOBACTERIUM BIFIDUM, BIFIDOBACTERIUM INFANT [Concomitant]
     Dates: start: 20170131, end: 20170621
  3. TEGRETOL [Concomitant]
     Active Substance: CARBAMAZEPINE
     Dates: end: 20170208
  4. CYSTADANE [Suspect]
     Active Substance: BETAINE
     Indication: HOMOCYSTINURIA
     Route: 048
     Dates: start: 20151222
  5. ELCARTIN (ACETYLCARNITINE HYDROCHLORIDE) [Concomitant]
     Route: 048
  6. BIOTIN [Concomitant]
     Active Substance: BIOTIN
     Dates: start: 20151228
  7. FRESMIN (HYDROXOCOBALAMIN) [Concomitant]
     Route: 058

REACTIONS (2)
  - Gastroenteritis [Recovering/Resolving]
  - Gastroenteritis [Recovering/Resolving]

NARRATIVE: CASE EVENT DATE: 20170128
